FAERS Safety Report 5995131-9 (Version None)
Quarter: 2008Q4

REPORT INFORMATION
  Report Type: 
  Country: None (occurrence: None)
  Receive Date: 20081212
  Receipt Date: 20081205
  Transmission Date: 20090506
  Serious: Yes (Hospitalization, Other)
  Sender: FDA-Public Use
  Company Number: PHHY2008BR30958

PATIENT
  Sex: Male

DRUGS (8)
  1. SANDOSTATIN LAR [Suspect]
     Indication: METASTASES TO LIVER
     Dosage: 150 MCG EVERY 8 HOURS
  2. SANDOSTATIN LAR [Suspect]
     Dosage: 10 MG EVERY 33 DAYS
  3. NAPRIX [Concomitant]
     Indication: HYPERTENSION
     Dosage: 5 MG/ 12.5 MG
     Route: 048
  4. TAMSULOSIN HCL [Concomitant]
     Indication: PROSTATIC DISORDER
     Dosage: 1 TABLET
     Route: 048
     Dates: start: 20071208
  5. INSULIN [Concomitant]
     Indication: DIABETES MELLITUS
     Dosage: 36 IU IN THE MORNING AND 10 IU AT NIGHT
     Route: 058
  6. OMEPRAZOLE [Concomitant]
     Indication: NAUSEA
     Dosage: UNK
     Route: 048
  7. DRAMIN [Concomitant]
     Indication: NAUSEA
     Dosage: UNK
     Route: 048
  8. MECLIZINE [Concomitant]
     Indication: NAUSEA
     Dosage: UNK
     Route: 048

REACTIONS (7)
  - ASTHENIA [None]
  - DYSPNOEA [None]
  - ERYTHEMA [None]
  - GASTROOESOPHAGEAL REFLUX DISEASE [None]
  - HYPOPHAGIA [None]
  - MALAISE [None]
  - METABOLIC DISORDER [None]
